FAERS Safety Report 12375458 (Version 2)
Quarter: 2016Q2

REPORT INFORMATION
  Report Type: Report from Study
  Country: US (occurrence: US)
  Receive Date: 20160517
  Receipt Date: 20160609
  Transmission Date: 20160815
  Serious: Yes (Death, Other)
  Sender: FDA-Public Use
  Company Number: US-009507513-1605USA006066

PATIENT
  Sex: Female

DRUGS (1)
  1. KEYTRUDA [Suspect]
     Active Substance: PEMBROLIZUMAB
     Indication: BREAST CANCER
     Dosage: 115 MG, Q3W
     Route: 042
     Dates: start: 201512, end: 201512

REACTIONS (1)
  - Malignant neoplasm progression [Fatal]
